FAERS Safety Report 9894315 (Version 2)
Quarter: 2014Q1

REPORT INFORMATION
  Report Type: Spontaneous
  Country: US (occurrence: US)
  Receive Date: 20140213
  Receipt Date: 20140325
  Transmission Date: 20141002
  Serious: Yes (Other)
  Sender: FDA-Public Use
  Company Number: US-TEVA-461308USA

PATIENT
  Age: 36 Year
  Sex: Female
  Weight: 74.46 kg

DRUGS (5)
  1. COPAXONE [Suspect]
     Indication: MULTIPLE SCLEROSIS
     Dates: start: 201307
  2. COPAXONE [Suspect]
     Dates: end: 20131121
  3. VERAPAMIL [Concomitant]
     Indication: HYPERTENSION
  4. VITAMIN D [Concomitant]
  5. IVIG [Concomitant]
     Route: 042

REACTIONS (2)
  - Alanine aminotransferase increased [Recovered/Resolved]
  - Aspartate aminotransferase increased [Recovered/Resolved]
